FAERS Safety Report 19709905 (Version 1)
Quarter: 2021Q3

REPORT INFORMATION
  Report Type: Spontaneous
  Country: CN (occurrence: CN)
  Receive Date: 20210817
  Receipt Date: 20210817
  Transmission Date: 20211014
  Serious: Yes (Other)
  Sender: FDA-Public Use
  Company Number: CN-ROCHE-2892265

PATIENT
  Age: 52 Year
  Sex: Female

DRUGS (21)
  1. AVASTIN [Suspect]
     Active Substance: BEVACIZUMAB
     Route: 065
     Dates: start: 20200616
  2. AVASTIN [Suspect]
     Active Substance: BEVACIZUMAB
     Indication: OVARIAN CANCER
     Route: 065
     Dates: start: 20170222, end: 20170613
  3. PACLITAXEL LIPOSOME [Suspect]
     Active Substance: PACLITAXEL
     Indication: OVARIAN CANCER
     Route: 065
     Dates: start: 20170222, end: 20170613
  4. AVASTIN [Suspect]
     Active Substance: BEVACIZUMAB
     Route: 065
     Dates: start: 201811, end: 201903
  5. PEMBROLIZUMAB. [Concomitant]
     Active Substance: PEMBROLIZUMAB
     Route: 041
     Dates: start: 20210621
  6. AVASTIN [Suspect]
     Active Substance: BEVACIZUMAB
     Route: 065
     Dates: start: 20210126, end: 20210219
  7. AVASTIN [Suspect]
     Active Substance: BEVACIZUMAB
     Route: 065
     Dates: start: 20170728, end: 20171201
  8. CARBOPLATIN. [Suspect]
     Active Substance: CARBOPLATIN
     Route: 065
     Dates: start: 201811, end: 201903
  9. OLAPARIB. [Concomitant]
     Active Substance: OLAPARIB
     Route: 048
     Dates: start: 20210510
  10. PACLITAXEL LIPOSOME [Suspect]
     Active Substance: PACLITAXEL
     Route: 065
     Dates: start: 20210126, end: 20210219
  11. CARBOPLATIN. [Suspect]
     Active Substance: CARBOPLATIN
     Indication: OVARIAN CANCER
     Route: 065
     Dates: start: 20170222, end: 20170613
  12. CISPLATIN. [Suspect]
     Active Substance: CISPLATIN
     Indication: OVARIAN CANCER
     Route: 065
     Dates: start: 20200206, end: 20200519
  13. PEMBROLIZUMAB. [Concomitant]
     Active Substance: PEMBROLIZUMAB
     Indication: OVARIAN CANCER
     Route: 065
     Dates: start: 20210508, end: 20210602
  14. AVASTIN [Suspect]
     Active Substance: BEVACIZUMAB
     Route: 065
     Dates: start: 20200206, end: 20200519
  15. PACLITAXEL LIPOSOME [Suspect]
     Active Substance: PACLITAXEL
     Route: 065
     Dates: start: 20170728, end: 20171201
  16. PACLITAXEL LIPOSOME [Suspect]
     Active Substance: PACLITAXEL
     Route: 065
     Dates: start: 20200206, end: 20200519
  17. OLAPARIB. [Concomitant]
     Active Substance: OLAPARIB
     Indication: OVARIAN CANCER
     Route: 048
     Dates: start: 20200619
  18. NIRAPARIB [Concomitant]
     Active Substance: NIRAPARIB
     Indication: OVARIAN CANCER
     Route: 048
     Dates: start: 202012
  19. OLAPARIB. [Concomitant]
     Active Substance: OLAPARIB
     Dates: start: 20200619
  20. PACLITAXEL LIPOSOME [Suspect]
     Active Substance: PACLITAXEL
     Route: 065
     Dates: start: 201811, end: 201903
  21. CISPLATIN. [Suspect]
     Active Substance: CISPLATIN
     Route: 065
     Dates: start: 20210126, end: 20210219

REACTIONS (6)
  - Myelosuppression [Unknown]
  - Hepatic function abnormal [Unknown]
  - Off label use [Unknown]
  - Renal impairment [Unknown]
  - Anaemia [Unknown]
  - Gastrointestinal disorder [Unknown]

NARRATIVE: CASE EVENT DATE: 2021
